FAERS Safety Report 7797910-4 (Version None)
Quarter: 2011Q4

REPORT INFORMATION
  Report Type: 
  Country: None (occurrence: None)
  Receive Date: 20111004
  Receipt Date: 20111004
  Transmission Date: 20120403
  Serious: Yes (Hospitalization)
  Sender: FDA-Public Use
  Company Number: None

PATIENT
  Age: 77 Year
  Sex: Male
  Weight: 83.2 kg

DRUGS (2)
  1. BACLOFEN [Suspect]
     Indication: PAIN
     Dosage: MG BID PO
     Route: 048
     Dates: start: 20091029, end: 20110929
  2. TEMAZEPAM [Suspect]
     Indication: INSOMNIA
     Dosage: 30 MG AT BEDTIME PO
     Route: 048
     Dates: start: 20080701, end: 20110929

REACTIONS (7)
  - MENTAL STATUS CHANGES [None]
  - DOCUMENTED HYPERSENSITIVITY TO ADMINISTERED DRUG [None]
  - SLUGGISHNESS [None]
  - BACK PAIN [None]
  - STARING [None]
  - CONFUSIONAL STATE [None]
  - SEDATION [None]
